FAERS Safety Report 7726451-5 (Version None)
Quarter: 2011Q3

REPORT INFORMATION
  Report Type: 
  Country: None (occurrence: None)
  Receive Date: 20110902
  Receipt Date: 20110826
  Transmission Date: 20111222
  Serious: Yes (Hospitalization)
  Sender: FDA-Public Use
  Company Number: US-GENZYME-FLUD-1001370

PATIENT
  Sex: Female

DRUGS (4)
  1. CYCLOPHOSPHAMIDE [Suspect]
     Indication: MYELODYSPLASTIC SYNDROME
     Dosage: UNK
     Route: 065
  2. CYCLOPHOSPHAMIDE [Suspect]
     Indication: BONE MARROW CONDITIONING REGIMEN
  3. FLUDARA [Suspect]
     Indication: BONE MARROW CONDITIONING REGIMEN
  4. FLUDARA [Suspect]
     Indication: MYELODYSPLASTIC SYNDROME
     Dosage: UNK
     Route: 065

REACTIONS (2)
  - OBLITERATIVE BRONCHIOLITIS [None]
  - CHRONIC GRAFT VERSUS HOST DISEASE [None]
